FAERS Safety Report 24928650 (Version 2)
Quarter: 2025Q2

REPORT INFORMATION
  Report Type: Spontaneous
  Country: US (occurrence: US)
  Receive Date: 20250205
  Receipt Date: 20250506
  Transmission Date: 20250717
  Serious: Yes (Hospitalization)
  Sender: UCB
  Company Number: US-UCBSA-2025005964

PATIENT
  Age: 57 Year
  Sex: Male

DRUGS (2)
  1. BIMZELX [Suspect]
     Active Substance: BIMEKIZUMAB-BKZX
     Indication: Psoriasis
     Dosage: 320 MILLIGRAM, EV 4 WEEKS
     Route: 058
     Dates: start: 202406
  2. BIMZELX [Suspect]
     Active Substance: BIMEKIZUMAB-BKZX
     Dosage: 320 MILLIGRAM, EV 8 WEEKS
     Route: 058
     Dates: start: 202505

REACTIONS (6)
  - Hernia repair [Unknown]
  - Hip surgery [Unknown]
  - Hernia [Unknown]
  - Product use issue [Unknown]
  - Product dose omission issue [Unknown]
  - Foreign body [Unknown]

NARRATIVE: CASE EVENT DATE: 20250101
